FAERS Safety Report 18246822 (Version 2)
Quarter: 2020Q3

REPORT INFORMATION
  Report Type: Spontaneous
  Country: AU (occurrence: AU)
  Receive Date: 20200909
  Receipt Date: 20200918
  Transmission Date: 20201103
  Serious: Yes (Other)
  Sender: FDA-Public Use
  Company Number: AU-BAUSCH-BL-2020-025419

PATIENT
  Age: 68 Year
  Sex: Female

DRUGS (5)
  1. DOXORUBICIN [Suspect]
     Active Substance: DOXORUBICIN
     Indication: LEUKAEMIA IN REMISSION
     Route: 065
  2. RITUXIMAB. [Suspect]
     Active Substance: RITUXIMAB
     Indication: LEUKAEMIA IN REMISSION
     Route: 065
  3. VINCRISTINE [Suspect]
     Active Substance: VINCRISTINE
     Indication: LEUKAEMIA IN REMISSION
     Route: 065
  4. PREDNISOLONE. [Suspect]
     Active Substance: PREDNISOLONE
     Indication: LEUKAEMIA IN REMISSION
     Route: 065
  5. CYCLOPHOSPHAMIDE. [Suspect]
     Active Substance: CYCLOPHOSPHAMIDE
     Indication: LEUKAEMIA IN REMISSION
     Route: 065

REACTIONS (9)
  - Onychomadesis [Unknown]
  - Dry mouth [Unknown]
  - Device occlusion [Unknown]
  - Fatigue [Unknown]
  - Mouth ulceration [Unknown]
  - Nausea [Unknown]
  - Nerve injury [Unknown]
  - Papilloedema [Unknown]
  - Bowel movement irregularity [Unknown]
